FAERS Safety Report 21125900 (Version 1)
Quarter: 2022Q3

REPORT INFORMATION
  Report Type: Spontaneous
  Country: US (occurrence: None)
  Receive Date: 20220723
  Receipt Date: 20220723
  Transmission Date: 20221026
  Serious: Yes (Hospitalization, Disabling, Other)
  Sender: FDA-Public Use
  Company Number: None

PATIENT
  Age: 54 Year
  Sex: Female
  Weight: 82.8 kg

DRUGS (2)
  1. EMGALITY [Suspect]
     Active Substance: GALCANEZUMAB-GNLM
     Indication: Migraine
     Dosage: FREQUENCY : MONTHLY;?
     Route: 058
     Dates: start: 20220715, end: 20220715
  2. NORTEC [Concomitant]

REACTIONS (13)
  - Vomiting [None]
  - Somnolence [None]
  - Amnesia [None]
  - Blood pressure decreased [None]
  - Tremor [None]
  - Withdrawal syndrome [None]
  - Feeling abnormal [None]
  - Dissociative disorder [None]
  - Mood swings [None]
  - Aura [None]
  - Dizziness [None]
  - Nausea [None]
  - Chills [None]

NARRATIVE: CASE EVENT DATE: 20220716
